FAERS Safety Report 9854228 (Version 4)
Quarter: 2014Q1

REPORT INFORMATION
  Report Type: Report from Study
  Country: FR (occurrence: FR)
  Receive Date: 20140130
  Receipt Date: 20140205
  Transmission Date: 20141002
  Serious: Yes (Hospitalization)
  Sender: FDA-Public Use
  Company Number: FR-ROCHE-1331982

PATIENT
  Age: 72 Year
  Sex: Female

DRUGS (16)
  1. RITUXIMAB [Suspect]
     Indication: RHEUMATOID ARTHRITIS
     Dosage: DAY1 AND DAY 15, DAY 15 INFUSION ON 23/APR/2008
     Route: 042
     Dates: start: 20080409
  2. RITUXIMAB [Suspect]
     Dosage: DAY 1 AND 15, AY 15 INFUSION ON 01/DEC/2008
     Route: 042
     Dates: start: 20081107
  3. RITUXIMAB [Suspect]
     Dosage: DAY 1 AND 15, DAY 15 INFUSION ON:03/JUL/2009
     Route: 042
     Dates: start: 20090619
  4. RITUXIMAB [Suspect]
     Dosage: DAY 1 AND 15, DAY 15 INFUSION ON:02/AUG/2010
     Route: 042
     Dates: start: 20100719
  5. RITUXIMAB [Suspect]
     Dosage: DAY AND DAY 15, DAY 15 INFUSION ON 13/APR/2011
     Route: 042
     Dates: start: 20110330
  6. RITUXIMAB [Suspect]
     Dosage: DAY 1 AND 15, DAY 15 INFUSION ON:14/DEC/2011
     Route: 042
     Dates: start: 20111130
  7. RITUXIMAB [Suspect]
     Dosage: DAY 1 AND DAY 15, DAY 15 INFUSION ON 11/OCT/2012
     Route: 042
     Dates: start: 20120927
  8. RITUXIMAB [Suspect]
     Dosage: DAY 1 AND DAY 15, DAY 15 INFUSION ON:28/JUN/2013
     Route: 042
     Dates: start: 20130614
  9. METHOTREXATE [Concomitant]
     Route: 065
     Dates: end: 20080604
  10. CORTANCYL [Concomitant]
     Route: 065
  11. CORTANCYL [Concomitant]
     Route: 065
  12. CORTANCYL [Concomitant]
     Route: 065
  13. CORTANCYL [Concomitant]
     Route: 065
  14. CORTANCYL [Concomitant]
     Route: 065
  15. PARACETAMOL [Concomitant]
  16. LEFLUNOMIDE [Concomitant]

REACTIONS (8)
  - Diverticulum intestinal [Recovered/Resolved with Sequelae]
  - Pulmonary fibrosis [Recovered/Resolved]
  - Infusion related reaction [Recovered/Resolved]
  - Psoriasis [Not Recovered/Not Resolved]
  - Influenza [Recovered/Resolved]
  - Urinary tract infection [Recovered/Resolved]
  - Micturition urgency [Not Recovered/Not Resolved]
  - Defaecation urgency [Not Recovered/Not Resolved]
